FAERS Safety Report 25383589 (Version 1)
Quarter: 2025Q2

REPORT INFORMATION
  Report Type: Spontaneous
  Country: LT (occurrence: LT)
  Receive Date: 20250602
  Receipt Date: 20250602
  Transmission Date: 20250716
  Serious: Yes (Other)
  Sender: ACCORD
  Company Number: LT-IGNPR-OME-2025-002-0

PATIENT
  Age: 35 Year
  Sex: Female

DRUGS (5)
  1. ALLOPURINOL [Suspect]
     Active Substance: ALLOPURINOL
     Indication: Product used for unknown indication
  2. METHOTREXATE [Suspect]
     Active Substance: METHOTREXATE
     Indication: Product used for unknown indication
  3. OMEPRAZOLE [Suspect]
     Active Substance: OMEPRAZOLE
     Indication: Product used for unknown indication
  4. PREDNISOLONE [Suspect]
     Active Substance: PREDNISOLONE
     Indication: Product used for unknown indication
  5. PROGESTERONE [Suspect]
     Active Substance: PROGESTERONE
     Indication: Prophylaxis

REACTIONS (3)
  - Exposure during pregnancy [Unknown]
  - Hepatic enzyme increased [Recovered/Resolved]
  - Premature delivery [Unknown]
